FAERS Safety Report 6793786-2 (Version None)
Quarter: 2010Q2

REPORT INFORMATION
  Report Type: 
  Country: None (occurrence: None)
  Receive Date: 20100624
  Receipt Date: 20090401
  Transmission Date: 20101027
  Serious: No
  Sender: FDA-Public Use
  Company Number: US-PFIZER INC-2009161581

PATIENT
  Sex: Male

DRUGS (2)
  1. CADUET [Suspect]
     Dosage: AMLODIPINE/ATORVASTATIN: 5/40
  2. LIPITOR [Suspect]

REACTIONS (2)
  - COUGH [None]
  - PAIN IN EXTREMITY [None]
